FAERS Safety Report 21469970 (Version 2)
Quarter: 2023Q2

REPORT INFORMATION
  Report Type: Report from Study
  Country: US (occurrence: US)
  Receive Date: 20221018
  Receipt Date: 20230408
  Transmission Date: 20230721
  Serious: No
  Sender: FDA-Public Use
  Company Number: US-ABBVIE-4165007

PATIENT
  Sex: Female

DRUGS (2)
  1. HUMIRA [Suspect]
     Active Substance: ADALIMUMAB
     Indication: Ankylosing spondylitis
     Dosage: CITRATE FREE
     Route: 058
     Dates: end: 20220923
  2. Pfizer/BioNtech Covid 19 vaccine [Concomitant]
     Indication: COVID-19 immunisation
     Dosage: 1 IN ONCE
     Route: 030

REACTIONS (8)
  - Back pain [Unknown]
  - Arthralgia [Unknown]
  - Product temperature excursion issue [Unknown]
  - Pain [Unknown]
  - Stress [Unknown]
  - Illness [Unknown]
  - COVID-19 [Unknown]
  - Amnesia [Unknown]
